FAERS Safety Report 10216014 (Version 3)
Quarter: 2014Q3

REPORT INFORMATION
  Report Type: Spontaneous
  Country: US (occurrence: US)
  Receive Date: 20140604
  Receipt Date: 20140827
  Transmission Date: 20150326
  Serious: Yes (Hospitalization)
  Sender: FDA-Public Use
  Company Number: US-BAYER-2014-082902

PATIENT
  Age: 15 Year
  Sex: Female
  Weight: 86.17 kg

DRUGS (1)
  1. YAZ [Suspect]
     Active Substance: DROSPIRENONE\ETHINYL ESTRADIOL
     Indication: CONTRACEPTION
     Dosage: UNK
     Route: 048
     Dates: start: 200910, end: 200911

REACTIONS (4)
  - Deep vein thrombosis [None]
  - General physical health deterioration [None]
  - Pain [None]
  - Injury [None]

NARRATIVE: CASE EVENT DATE: 20091012
